FAERS Safety Report 24155170 (Version 2)
Quarter: 2024Q4

REPORT INFORMATION
  Report Type: Spontaneous
  Country: US (occurrence: US)
  Receive Date: 20240731
  Receipt Date: 20241017
  Transmission Date: 20250114
  Serious: Yes (Hospitalization)
  Sender: CHEPLAPHARM
  Company Number: US-PFIZER INC-202400193023

PATIENT
  Age: 73 Year
  Sex: Female
  Weight: 73.93 kg

DRUGS (7)
  1. CAPECITABINE [Suspect]
     Active Substance: CAPECITABINE
     Indication: Neoplasm malignant
     Dosage: BID, TAKE 3 TABLETS OF 500 MG HALF AN HOUR AFTER BREAKFAST AND THEN HALF AN HOUR AFTER EVENING ME...
     Dates: start: 20240609
  2. TUKYSA [Suspect]
     Active Substance: TUCATINIB
     Indication: Neoplasm malignant
     Dosage: BID, TWO 150 MG TABLETS EVERY 12 HOURS BY MOUTH WITH OR WITHOUT FOOD, TAKES EVERY SINGLE DAY,?ON...
     Route: 048
     Dates: start: 20240608
  3. OMEPRAZOLE [Concomitant]
     Active Substance: OMEPRAZOLE
     Indication: Gastrooesophageal reflux disease
     Dosage: ONGOING
  4. FAMOTIDINE [Concomitant]
     Active Substance: FAMOTIDINE
     Dosage: ONGOING
  5. ROSUVASTATIN [Concomitant]
     Active Substance: ROSUVASTATIN
     Indication: Hypocholesterolaemia
     Dosage: ONGOING
  6. LISINOPRIL [Concomitant]
     Active Substance: LISINOPRIL
     Dosage: ONGOING
  7. METOPROLOL [Concomitant]
     Active Substance: METOPROLOL
     Indication: Cardiac disorder
     Dosage: ONGOING
     Dates: start: 2023

REACTIONS (11)
  - Retching [Recovered/Resolved]
  - Lymphadenopathy [Unknown]
  - Infection [Unknown]
  - Nausea [Recovering/Resolving]
  - Fatigue [Not Recovered/Not Resolved]
  - Vomiting [Recovered/Resolved]
  - Neoplasm progression [Unknown]
  - Coccydynia [Unknown]
  - Rhinorrhoea [Unknown]
  - Illness [Unknown]
  - Somnolence [Unknown]

NARRATIVE: CASE EVENT DATE: 20240101
